FAERS Safety Report 5916652-0 (Version None)
Quarter: 2008Q4

REPORT INFORMATION
  Report Type: 
  Country: None (occurrence: None)
  Receive Date: 20081013
  Receipt Date: 20080930
  Transmission Date: 20090506
  Serious: Yes (Other)
  Sender: FDA-Public Use
  Company Number: BR-ROCHE-589253

PATIENT
  Sex: Female

DRUGS (1)
  1. BONIVA [Suspect]
     Indication: OSTEOPOROSIS
     Dosage: REGIMEN REPORTED: ONE TABLET/ MONTH
     Route: 048
     Dates: start: 20060101

REACTIONS (2)
  - FALL [None]
  - FEMUR FRACTURE [None]
